FAERS Safety Report 5978492-6 (Version None)
Quarter: 2008Q4

REPORT INFORMATION
  Report Type: 
  Country: None (occurrence: None)
  Receive Date: 20081204
  Receipt Date: 20081103
  Transmission Date: 20090506
  Serious: No
  Sender: FDA-Public Use
  Company Number: US-BAYER-200814292BCC

PATIENT
  Age: 82 Year
  Sex: Male
  Weight: 85 kg

DRUGS (6)
  1. ALEVE [Suspect]
     Indication: BACK PAIN
     Dosage: TOTAL DAILY DOSE: 440 MG  UNIT DOSE: 220 MG
  2. ALEVE [Suspect]
     Dosage: TOTAL DAILY DOSE: 220 MG  UNIT DOSE: 220 MG
  3. ANTACID TAB [Concomitant]
  4. METOPROLOL TARTRATE [Concomitant]
  5. WARFARIN SODIUM [Concomitant]
  6. SIMVASTATIN [Concomitant]

REACTIONS (1)
  - BACK PAIN [None]
